FAERS Safety Report 25552532 (Version 1)
Quarter: 2025Q3

REPORT INFORMATION
  Report Type: Spontaneous
  Country: US (occurrence: US)
  Receive Date: 20250715
  Receipt Date: 20250715
  Transmission Date: 20251021
  Serious: Yes (Other)
  Sender: COOPERSURGICAL
  Company Number: US-COOPERSURGICAL, INC.-2025CPS005357

PATIENT
  Age: 23 Year
  Sex: Female
  Weight: 48.526 kg

DRUGS (1)
  1. PARAGARD T 380A [Suspect]
     Active Substance: COPPER
     Indication: Contraception
     Route: 015
     Dates: start: 20150527

REACTIONS (13)
  - Reproductive complication associated with device [Unknown]
  - Laparotomy [Recovered/Resolved]
  - Device breakage [Recovered/Resolved]
  - Foreign body in urogenital tract [Recovered/Resolved]
  - Complication of device removal [Recovered/Resolved]
  - Embedded device [Recovered/Resolved]
  - Endometriosis [Unknown]
  - Device dislocation [Recovered/Resolved]
  - Muscle spasms [Unknown]
  - Dyspareunia [Unknown]
  - Device expulsion [Recovered/Resolved]
  - Abdominal pain lower [Unknown]
  - Bacterial vaginosis [Unknown]

NARRATIVE: CASE EVENT DATE: 20190131
